FAERS Safety Report 6391087-8 (Version None)
Quarter: 2009Q4

REPORT INFORMATION
  Report Type: 
  Country: None (occurrence: None)
  Receive Date: 20091006
  Receipt Date: 20091006
  Transmission Date: 20100525
  Serious: Yes (Hospitalization)
  Sender: FDA-Public Use
  Company Number: None

PATIENT
  Age: 17 Year
  Sex: Female

DRUGS (2)
  1. YASMIN [Suspect]
     Indication: ACNE
     Dosage: 1 TAB DAILY ORAL(PO)
     Route: 048
     Dates: start: 20080901, end: 20090916
  2. BACTRIM DS [Suspect]
     Indication: ACNE
     Dosage: 1/2 TAB DAILY ORAL(PO)
     Route: 048
     Dates: start: 20070801, end: 20090916

REACTIONS (1)
  - PANCREATITIS [None]
